FAERS Safety Report 18230064 (Version 2)
Quarter: 2020Q4

REPORT INFORMATION
  Report Type: Spontaneous
  Country: US (occurrence: US)
  Receive Date: 20200904
  Receipt Date: 20201218
  Transmission Date: 20210113
  Serious: Yes (Other)
  Sender: FDA-Public Use
  Company Number: US-009507513-2009USA000382

PATIENT
  Sex: Female

DRUGS (2)
  1. SINGULAIR [Suspect]
     Active Substance: MONTELUKAST SODIUM
     Indication: ASTHMA
     Dosage: UNK
     Route: 048
     Dates: start: 1998, end: 2010
  2. SINGULAIR [Suspect]
     Active Substance: MONTELUKAST SODIUM
     Indication: SEASONAL ALLERGY

REACTIONS (9)
  - Suicidal ideation [Unknown]
  - Neuropsychiatric symptoms [Unknown]
  - Anxiety [Unknown]
  - Aggression [Unknown]
  - Abnormal dreams [Unknown]
  - Hallucination [Unknown]
  - Tremor [Unknown]
  - Depression [Unknown]
  - Dysphemia [Unknown]
